FAERS Safety Report 6446805-7 (Version None)
Quarter: 2009Q4

REPORT INFORMATION
  Report Type: 
  Country: None (occurrence: None)
  Receive Date: 20091119
  Receipt Date: 20091109
  Transmission Date: 20100525
  Serious: Yes (Hospitalization)
  Sender: FDA-Public Use
  Company Number: PHHY2009GB49423

PATIENT
  Sex: Female

DRUGS (2)
  1. CLOZARIL [Suspect]
     Indication: SCHIZOPHRENIA
     Dosage: 600 MG, UNK
     Dates: start: 20080711
  2. CLOZARIL [Suspect]
     Dosage: 2.4 G
     Dates: start: 20091106

REACTIONS (1)
  - OVERDOSE [None]
